FAERS Safety Report 12676532 (Version 1)
Quarter: 2016Q3

REPORT INFORMATION
  Report Type: Spontaneous
  Country: US (occurrence: None)
  Receive Date: 20160822
  Receipt Date: 20160822
  Transmission Date: 20161109
  Serious: Yes (Other)
  Sender: FDA-Public Use
  Company Number: None

PATIENT
  Age: 8 Year
  Sex: Male
  Weight: 39.5 kg

DRUGS (1)
  1. MONTELUKAST, 5MG BOEHRINGER INGELHEIM ROXANE LABORA [Suspect]
     Active Substance: MONTELUKAST SODIUM
     Indication: COUGH
     Route: 048
     Dates: start: 20160707, end: 20160712

REACTIONS (3)
  - Mood altered [None]
  - Affect lability [None]
  - Aggression [None]

NARRATIVE: CASE EVENT DATE: 20160707
